FAERS Safety Report 7389183-1 (Version None)
Quarter: 2011Q2

REPORT INFORMATION
  Report Type: 
  Country: None (occurrence: None)
  Receive Date: 20110401
  Receipt Date: 20110331
  Transmission Date: 20111010
  Serious: Yes (Other)
  Sender: FDA-Public Use
  Company Number: A0920833A

PATIENT
  Age: 45 Year
  Sex: Female

DRUGS (1)
  1. ALLI [Suspect]
     Indication: WEIGHT LOSS DIET
     Route: 048
     Dates: end: 20110327

REACTIONS (3)
  - EYE DISORDER [None]
  - OCULAR ICTERUS [None]
  - SKIN DISCOLOURATION [None]
